FAERS Safety Report 9698006 (Version 1)
Quarter: 2013Q4

REPORT INFORMATION
  Report Type: Spontaneous
  Country: BR (occurrence: BR)
  Receive Date: 20131120
  Receipt Date: 20131120
  Transmission Date: 20140711
  Serious: Yes (Disabling)
  Sender: FDA-Public Use
  Company Number: BR-SA-2013SA117298

PATIENT
  Sex: Female

DRUGS (2)
  1. CLOPIDOGREL BISULFATE [Suspect]
     Indication: ANGIOPATHY
     Route: 048
     Dates: start: 20131105, end: 20131109
  2. INTERFERON BETA [Concomitant]
     Indication: MULTIPLE SCLEROSIS

REACTIONS (1)
  - Deafness [Not Recovered/Not Resolved]
